FAERS Safety Report 9246588 (Version 1)
Quarter: 2013Q2

REPORT INFORMATION
  Report Type: Report from Study
  Country: US (occurrence: US)
  Receive Date: 20130422
  Receipt Date: 20130422
  Transmission Date: 20140414
  Serious: No
  Sender: FDA-Public Use
  Company Number: US-ABBOTT-12P-163-0932480-00

PATIENT
  Sex: Female

DRUGS (1)
  1. LUPRON DEPOT-PED 11.25 MG (3 MONTH) [Suspect]
     Indication: PRECOCIOUS PUBERTY
     Dates: start: 201111

REACTIONS (3)
  - Emotional disorder [Unknown]
  - Swelling [Unknown]
  - Weight increased [Unknown]
